FAERS Safety Report 8971700 (Version 3)
Quarter: 2013Q1

REPORT INFORMATION
  Report Type: Report from Study
  Country: JP (occurrence: JP)
  Receive Date: 20121217
  Receipt Date: 20130109
  Transmission Date: 20140127
  Serious: Yes (Hospitalization)
  Sender: FDA-Public Use
  Company Number: JP-BRISTOL-MYERS SQUIBB COMPANY-17148123

PATIENT
  Age: 51 Year
  Sex: Male

DRUGS (6)
  1. METGLUCO [Suspect]
     Indication: TYPE 2 DIABETES MELLITUS
     Dosage: LAST DOSE: 13JUN2012
     Route: 048
     Dates: start: 20111003, end: 20120613
  2. RASILEZ [Concomitant]
     Route: 048
     Dates: start: 20111121
  3. PYRIDOXAL PHOSPHATE [Concomitant]
     Dates: start: 20111215
  4. MAGMITT [Concomitant]
     Route: 048
  5. AMOBAN [Concomitant]
     Route: 048
  6. AMOBAN [Concomitant]
     Route: 048

REACTIONS (3)
  - Pancreatitis acute [Recovered/Resolved]
  - Cholangitis [Recovered/Resolved]
  - Bile duct stone [Recovered/Resolved]
